FAERS Safety Report 15297048 (Version 1)
Quarter: 2018Q3

REPORT INFORMATION
  Report Type: Report from Study
  Country: None (occurrence: US)
  Receive Date: 20180820
  Receipt Date: 20180820
  Transmission Date: 20181010
  Serious: Yes (Other)
  Sender: FDA-Public Use
  Company Number: US-RICON PHARMA, LLC-RIC201808-000863

PATIENT
  Age: 57 Year
  Sex: Female

DRUGS (3)
  1. MYCOPHENOLATE MOFETIL. [Concomitant]
     Active Substance: MYCOPHENOLATE MOFETIL
  2. PREDNISONE. [Suspect]
     Active Substance: PREDNISONE
     Indication: ACUTE ZONAL OCCULT OUTER RETINOPATHY
  3. TRIAMCINOLONE ACETONIDE. [Suspect]
     Active Substance: TRIAMCINOLONE ACETONIDE

REACTIONS (2)
  - Cataract [Unknown]
  - Chorioretinopathy [Recovering/Resolving]
